FAERS Safety Report 7909113 (Version 2)
Quarter: 2012Q4

REPORT INFORMATION
  Report Type: 
  Country: US (occurrence: US)
  Receive Date: 20110421
  Receipt Date: 20121228
  Transmission Date: 20130627
  Serious: No
  Sender: FDA-Public Use
  Company Number: US-ASTRAZENECA-2005UW13316

PATIENT
  Age: 73 Year
  Sex: Female
  Weight: 79.4 kg

DRUGS (12)
  1. TOPROL XL [Suspect]
     Indication: HYPERTENSION
     Route: 048
     Dates: start: 200504
  2. TOPROL XL [Suspect]
     Indication: ARRHYTHMIA
     Route: 048
     Dates: start: 200504
  3. TOPROL XL [Suspect]
     Indication: HYPERTENSION
     Route: 048
  4. TOPROL XL [Suspect]
     Indication: ARRHYTHMIA
     Route: 048
  5. HYDROCHLOROTHIAZIDE [Concomitant]
  6. CLONAPIN [Concomitant]
  7. PEPCID [Concomitant]
  8. DOMPERIDONE [Concomitant]
  9. BABY ASPIRIN [Concomitant]
  10. TYLENOL [Concomitant]
  11. HERCEPTIN [Concomitant]
  12. RAMAPRIL [Concomitant]

REACTIONS (8)
  - Myalgia [Unknown]
  - Musculoskeletal pain [Unknown]
  - Hypertension [Unknown]
  - Flatulence [Unknown]
  - Headache [Not Recovered/Not Resolved]
  - Neck pain [Unknown]
  - Oedema peripheral [Unknown]
  - Alopecia [Not Recovered/Not Resolved]
